FAERS Safety Report 8308100-0 (Version None)
Quarter: 2012Q2

REPORT INFORMATION
  Report Type: 
  Country: None (occurrence: None)
  Receive Date: 20120424
  Receipt Date: 20120207
  Transmission Date: 20120825
  Serious: Yes (Hospitalization, Other)
  Sender: FDA-Public Use
  Company Number: US-ROCHE-1012137

PATIENT
  Sex: Female

DRUGS (5)
  1. HERCEPTIN [Suspect]
     Dosage: MAINTANCE DOSE, WEEKLY WEEKS 2-10, LAST DOSE PRIOR TO SAE 22 NOV 2000
     Route: 042
  2. HERCEPTIN [Suspect]
     Indication: BREAST CANCER
     Dosage: LOADING DOSE ON WEEK 1, ON WEEK 1 CYCLE 9  FOLLOWED BY 2 MG/KG WEEKLY X 1 YEAR
     Route: 042
     Dates: start: 19991222
  3. CYCLOPHOSPHAMIDE [Suspect]
     Indication: BREAST CANCER
     Dosage: ON DAY 1 BEGINNING CYCLE 5, EVERY 3 WEEKS X 4
     Route: 042
     Dates: start: 19991222
  4. DOXORUBICIN HYDROCHLORIDE [Suspect]
     Indication: BREAST CANCER
     Dosage: ON DAY 1 BEGINNING CYCLE 5, EVERY 3 WEEKS X 4
     Dates: start: 19991222
  5. PACLITAXEL [Suspect]
     Indication: BREAST CANCER
     Dosage: ON DAY 1, EVERY 21 DAYS X 4
     Route: 042
     Dates: start: 19991222

REACTIONS (7)
  - BONE PAIN [None]
  - APHASIA [None]
  - VOMITING [None]
  - CONSTIPATION [None]
  - ATAXIA [None]
  - DEHYDRATION [None]
  - SYNCOPE [None]
